FAERS Safety Report 9131324 (Version 1)
Quarter: 2013Q1

REPORT INFORMATION
  Report Type: Spontaneous
  Country: JP (occurrence: JP)
  Receive Date: 20130301
  Receipt Date: 20130301
  Transmission Date: 20140127
  Serious: Yes (Other)
  Sender: FDA-Public Use
  Company Number: JP-ASTELLAS-2013JP002843

PATIENT
  Age: 6 Year
  Sex: Female

DRUGS (5)
  1. PROGRAF [Suspect]
     Indication: STIFF PERSON SYNDROME
     Route: 048
  2. IMMUNOGLOBULIN                     /00025201/ [Concomitant]
     Indication: IMMUNOGLOBULIN THERAPY
     Route: 042
  3. DIAZEPAM [Concomitant]
     Indication: MUSCLE TIGHTNESS
     Route: 042
  4. BACLOFEN [Concomitant]
     Route: 065
  5. BOTOX [Concomitant]
     Route: 065

REACTIONS (3)
  - Drug ineffective for unapproved indication [Unknown]
  - Stiff person syndrome [Unknown]
  - Cataract [Unknown]
